FAERS Safety Report 13010933 (Version 1)
Quarter: 2016Q4

REPORT INFORMATION
  Report Type: Report from Study
  Country: IT (occurrence: IT)
  Receive Date: 20161208
  Receipt Date: 20161208
  Transmission Date: 20170207
  Serious: Yes (Other)
  Sender: FDA-Public Use
  Company Number: IT-ALLERGAN-1679750US

PATIENT
  Age: 23 Year
  Sex: Female

DRUGS (1)
  1. ESCITALOPRAM OXALATE UNK [Suspect]
     Active Substance: ESCITALOPRAM OXALATE
     Indication: DRUG ABUSE
     Dosage: 10 MG, QD
     Route: 048

REACTIONS (5)
  - Drug abuse [Unknown]
  - Product use issue [Unknown]
  - Aggression [Recovering/Resolving]
  - Hyperventilation [Recovering/Resolving]
  - Overdose [Unknown]

NARRATIVE: CASE EVENT DATE: 20140408
